FAERS Safety Report 18007452 (Version 2)
Quarter: 2020Q3

REPORT INFORMATION
  Report Type: Other
  Country: GB (occurrence: GB)
  Receive Date: 20200710
  Receipt Date: 20200715
  Transmission Date: 20201103
  Serious: Yes (Disabling)
  Sender: FDA-Public Use
  Company Number: GB-B.BRAUN MEDICAL INC.-2087213

PATIENT
  Age: 17 Year
  Sex: Female

DRUGS (3)
  1. BUPIVACAINE HYDROCHLORIDE WITH DEXTROSE [Suspect]
     Active Substance: BUPIVACAINE HYDROCHLORIDE
  2. MIDAZOLAM. [Concomitant]
     Active Substance: MIDAZOLAM
  3. TRIAMCINOLONE ACETONIDE. [Concomitant]
     Active Substance: TRIAMCINOLONE ACETONIDE

REACTIONS (1)
  - Conus medullaris syndrome [None]
